FAERS Safety Report 8265531 (Version 2)
Quarter: 2014Q1

REPORT INFORMATION
  Report Type: Spontaneous
  Country: CA (occurrence: CA)
  Receive Date: 20111128
  Receipt Date: 20140313
  Transmission Date: 20141002
  Serious: No
  Sender: FDA-Public Use
  Company Number: CA-ROCHE-1014601

PATIENT
  Sex: Female

DRUGS (2)
  1. ACCUTANE [Suspect]
     Indication: ACNE
     Route: 048
     Dates: start: 2011, end: 2011
  2. ACCUTANE [Suspect]
     Route: 048
     Dates: start: 201108, end: 20110920

REACTIONS (1)
  - Pregnancy [Unknown]
